FAERS Safety Report 4847447-7 (Version None)
Quarter: 2005Q4

REPORT INFORMATION
  Report Type: 
  Country: None (occurrence: None)
  Receive Date: 20051207
  Receipt Date: 20051128
  Transmission Date: 20060501
  Serious: Yes (Death)
  Sender: FDA-Public Use
  Company Number: US-AMGEN-US159519

PATIENT
  Sex: Male

DRUGS (9)
  1. PROCRIT [Suspect]
     Indication: RENAL FAILURE CHRONIC
  2. DEPAKOTE [Concomitant]
  3. PROTONIX [Concomitant]
  4. CATAPRES-TTS-1 [Concomitant]
  5. ZYPREXA [Concomitant]
  6. NIFEDIPINE [Concomitant]
  7. METOCLOPRAMIDE [Concomitant]
  8. COLCHICINE [Concomitant]
  9. PREVACID [Concomitant]

REACTIONS (1)
  - DEATH [None]
